FAERS Safety Report 20616694 (Version 1)
Quarter: 2022Q1

REPORT INFORMATION
  Report Type: Spontaneous
  Country: AU (occurrence: AU)
  Receive Date: 20220321
  Receipt Date: 20220321
  Transmission Date: 20220423
  Serious: Yes (Hospitalization, Other)
  Sender: FDA-Public Use
  Company Number: AU-AMGEN-AUSSP2022044161

PATIENT
  Age: 74 Year
  Sex: Female

DRUGS (1)
  1. PROLIA [Suspect]
     Active Substance: DENOSUMAB
     Indication: Bone density decreased
     Dosage: UNK
     Route: 065
     Dates: start: 2020

REACTIONS (3)
  - Spinal fracture [Unknown]
  - Cholecystectomy [Unknown]
  - Off label use [Unknown]

NARRATIVE: CASE EVENT DATE: 20200101
